FAERS Safety Report 9632282 (Version 3)
Quarter: 2014Q1

REPORT INFORMATION
  Report Type: Spontaneous
  Country: JP (occurrence: JP)
  Receive Date: 20131018
  Receipt Date: 20140113
  Transmission Date: 20141002
  Serious: Yes (Death, Hospitalization, Other)
  Sender: FDA-Public Use
  Company Number: JP-BAYER-2013-123412

PATIENT
  Age: 58 Year
  Sex: Male
  Weight: 61 kg

DRUGS (8)
  1. NEXAVAR [Suspect]
     Indication: HEPATOCELLULAR CARCINOMA
     Dosage: DAILY DOSE 400 MG
     Route: 048
  2. NEXAVAR [Suspect]
     Indication: HEPATOCELLULAR CARCINOMA
     Dosage: DAILY DOSE 800 MG
     Route: 048
     Dates: start: 20121120, end: 20130207
  3. LIVACT [Concomitant]
     Dosage: DAILY DOSE 12.45 G
     Route: 048
     Dates: start: 20120810
  4. URSO [Concomitant]
     Dosage: DAILY DOSE 600 MG
     Route: 048
     Dates: start: 20070313
  5. TAKEPRON [Concomitant]
     Dosage: DAILY DOSE 15 MG
     Route: 048
     Dates: start: 20120815
  6. LOXONIN [Concomitant]
     Dosage: DAILY DOSE 180 MG
     Route: 048
     Dates: start: 20121120
  7. MUCOSTA [Concomitant]
     Dosage: DAILY DOSE 300 MG
     Route: 048
     Dates: start: 20121120
  8. TRAMAL [Concomitant]
     Dosage: DAILY DOSE 100 MG
     Route: 048
     Dates: start: 20121120

REACTIONS (4)
  - Stomatitis [Recovering/Resolving]
  - Metastases to peritoneum [None]
  - General physical health deterioration [None]
  - Hepatocellular carcinoma [Fatal]
